FAERS Safety Report 15376775 (Version 1)
Quarter: 2018Q3

REPORT INFORMATION
  Report Type: Spontaneous
  Country: CH (occurrence: CH)
  Receive Date: 20180913
  Receipt Date: 20180913
  Transmission Date: 20181010
  Serious: Yes (Other)
  Sender: FDA-Public Use
  Company Number: CH-ASTRAZENECA-2018SF12387

PATIENT
  Age: 8 Month
  Sex: Female
  Weight: 10 kg

DRUGS (15)
  1. SPIRONOLACTONE. [Suspect]
     Active Substance: SPIRONOLACTONE
     Route: 048
     Dates: start: 20180810
  2. IRBESARTAN. [Suspect]
     Active Substance: IRBESARTAN
     Route: 048
  3. ETACRYNIC ACID [Suspect]
     Active Substance: ETHACRYNIC ACID
     Route: 042
  4. NEXIUM [Suspect]
     Active Substance: ESOMEPRAZOLE MAGNESIUM
     Route: 048
  5. OSPEN [Suspect]
     Active Substance: PENICILLIN V
     Route: 048
     Dates: start: 20180813
  6. ENOXAPARIN [Suspect]
     Active Substance: ENOXAPARIN
     Route: 058
     Dates: start: 201808
  7. FUROSEMIDE. [Suspect]
     Active Substance: FUROSEMIDE
     Route: 048
     Dates: start: 201808
  8. NIFEDIPINE. [Suspect]
     Active Substance: NIFEDIPINE
     Route: 065
     Dates: start: 20180813, end: 20180821
  9. FUROSEMIDE. [Suspect]
     Active Substance: FUROSEMIDE
     Route: 042
     Dates: start: 201808, end: 20180815
  10. AMILORIDE [Suspect]
     Active Substance: AMILORIDE
     Route: 048
     Dates: start: 20180813
  11. ENALAPRIL [Suspect]
     Active Substance: ENALAPRIL
     Route: 048
  12. HUMAN ALBUMIN [Suspect]
     Active Substance: ALBUMIN HUMAN
     Route: 041
  13. VITAMIN D [Suspect]
     Active Substance: CHOLECALCIFEROL
     Dosage: UNK, DAILY
     Route: 065
  14. NYSTATIN. [Suspect]
     Active Substance: NYSTATIN
     Dosage: 1.0DF UNKNOWN
     Route: 062
  15. PREDNISOLONE. [Suspect]
     Active Substance: PREDNISOLONE
     Route: 048
     Dates: start: 20180803

REACTIONS (1)
  - Cell death [Not Recovered/Not Resolved]

NARRATIVE: CASE EVENT DATE: 20180811
